FAERS Safety Report 16201215 (Version 1)
Quarter: 2019Q2

REPORT INFORMATION
  Report Type: Spontaneous
  Country: CZ (occurrence: CZ)
  Receive Date: 20190416
  Receipt Date: 20190416
  Transmission Date: 20190711
  Serious: Yes (Life-Threatening)
  Sender: FDA-Public Use
  Company Number: CZ-TEVA-2019-CZ-1037120

PATIENT
  Age: 62 Year
  Sex: Male
  Weight: 120 kg

DRUGS (7)
  1. TARKA [Concomitant]
     Active Substance: TRANDOLAPRIL\VERAPAMIL HYDROCHLORIDE
     Dosage: 180 MILLIGRAM DAILY;
     Route: 048
  2. TORVAZIN [Concomitant]
     Dosage: 10 MILLIGRAM DAILY;
  3. GRANISETRON [Concomitant]
     Active Substance: GRANISETRON
     Indication: PREMEDICATION
     Dosage: 3 MG
     Route: 042
  4. DITIADEN [Concomitant]
     Indication: PREMEDICATION
     Dosage: 1 MG
     Route: 042
  5. DEXAMED [Concomitant]
     Indication: PREMEDICATION
     Dosage: 16 MG
  6. RANITIDINE. [Concomitant]
     Active Substance: RANITIDINE
     Indication: PREMEDICATION
     Dosage: 50 MG
     Route: 042
  7. OXALIPLATINA [Suspect]
     Active Substance: OXALIPLATIN
     Indication: COLON CANCER
     Dosage: 85 MG; 10TH CYCLE OF ADJUVANT CHEMOTHERAPY
     Route: 042
     Dates: start: 20181024, end: 20190318

REACTIONS (6)
  - Hypotension [Recovered/Resolved]
  - Hyperhidrosis [Recovered/Resolved]
  - Hypertension [Recovered/Resolved]
  - Hypersensitivity [Recovering/Resolving]
  - Nausea [Recovered/Resolved]
  - Erythema [Recovered/Resolved]

NARRATIVE: CASE EVENT DATE: 20190318
